FAERS Safety Report 6173259-0 (Version None)
Quarter: 2009Q2

REPORT INFORMATION
  Report Type: 
  Country: None (occurrence: None)
  Receive Date: 20090424
  Receipt Date: 20090108
  Transmission Date: 20091009
  Serious: No
  Sender: FDA-Public Use
  Company Number: ALL1-2009-00046

PATIENT
  Age: 17 Year
  Sex: Male
  Weight: 60.8 kg

DRUGS (5)
  1. VYVANSE [Suspect]
     Indication: ATTENTION DEFICIT/HYPERACTIVITY DISORDER
     Dosage: 50 MG, 1X/DAY:QD, ORAL
     Route: 048
     Dates: start: 20081209, end: 20081219
  2. VERAMYST [Concomitant]
  3. LORATADINE [Concomitant]
  4. INFLUENZA VIRUS VACCINE (INFLUENZA VIRUS VACCINE POLYVALENT) [Concomitant]
  5. MENINGOCOCCAL VACCINE (MENINGOCOCCAL POLYSACCHARIDE) [Concomitant]

REACTIONS (8)
  - ANXIETY [None]
  - CRYING [None]
  - DRUG EFFECT INCREASED [None]
  - FEELING JITTERY [None]
  - INFLUENZA [None]
  - INSOMNIA [None]
  - OFF LABEL USE [None]
  - RESTLESSNESS [None]
